FAERS Safety Report 10340584 (Version 1)
Quarter: 2014Q3

REPORT INFORMATION
  Report Type: Spontaneous
  Country: GR (occurrence: GR)
  Receive Date: 20140724
  Receipt Date: 20140724
  Transmission Date: 20150326
  Serious: Yes (Other)
  Sender: FDA-Public Use
  Company Number: GR-GLAXOSMITHKLINE-B1016987A

PATIENT
  Age: 76 Year
  Sex: Male

DRUGS (3)
  1. XOZAL [Concomitant]
     Active Substance: LEVOCETIRIZINE
  2. VOTRIENT [Suspect]
     Active Substance: PAZOPANIB HYDROCHLORIDE
     Indication: PRODUCT USED FOR UNKNOWN INDICATION
     Route: 065
     Dates: start: 201301, end: 201406
  3. CARVEDILOL. [Concomitant]
     Active Substance: CARVEDILOL
     Indication: HYPERTENSION

REACTIONS (4)
  - Petechiae [Unknown]
  - Eye haemorrhage [Unknown]
  - Contusion [Unknown]
  - Disease progression [Unknown]

NARRATIVE: CASE EVENT DATE: 201406
